FAERS Safety Report 6526851-5 (Version None)
Quarter: 2010Q1

REPORT INFORMATION
  Report Type: 
  Country: None (occurrence: None)
  Receive Date: 20100105
  Receipt Date: 20091221
  Transmission Date: 20100710
  Serious: Yes (Other)
  Sender: FDA-Public Use
  Company Number: PHHY2009US57933

PATIENT
  Sex: Male

DRUGS (2)
  1. EXELON [Suspect]
     Indication: DEMENTIA
     Dosage: 4.6MG DAILY
     Route: 062
  2. EXELON [Suspect]
     Dosage: 9.5MG DAILY
     Route: 062

REACTIONS (5)
  - ABASIA [None]
  - DYSARTHRIA [None]
  - INCOHERENT [None]
  - LETHARGY [None]
  - POSTURE ABNORMAL [None]
